FAERS Safety Report 19755865 (Version 2)
Quarter: 2021Q4

REPORT INFORMATION
  Report Type: Spontaneous
  Country: IT (occurrence: IT)
  Receive Date: 20210827
  Receipt Date: 20211013
  Transmission Date: 20220303
  Serious: Yes (Death, Hospitalization, Other)
  Sender: FDA-Public Use
  Company Number: None

PATIENT
  Age: 73 Year
  Sex: Male
  Weight: 91 kg

DRUGS (2)
  1. COMIRNATY [Suspect]
     Active Substance: TOZINAMERAN
     Indication: COVID-19 immunisation
     Dosage: DOSE 1, 0.3 ML SINGLE
     Route: 030
     Dates: start: 20210505, end: 20210505
  2. ATORVASTATIN [Suspect]
     Active Substance: ATORVASTATIN
     Indication: Carotid artery stenosis
     Dosage: 80 MG, 1X/DAY
     Route: 048
     Dates: start: 20191216, end: 20210515

REACTIONS (11)
  - Death [Fatal]
  - Rhabdomyolysis [Unknown]
  - Acute kidney injury [Unknown]
  - Pneumonia [Unknown]
  - Urine chromium increased [Unknown]
  - Blood creatine phosphokinase increased [Unknown]
  - Myalgia [Unknown]
  - Asthenia [Unknown]
  - Decreased appetite [Unknown]
  - Malaise [Unknown]
  - Hypokinesia [Unknown]

NARRATIVE: CASE EVENT DATE: 20210515
